FAERS Safety Report 19292732 (Version 3)
Quarter: 2023Q2

REPORT INFORMATION
  Report Type: Other
  Country: GB (occurrence: None)
  Receive Date: 20210524
  Receipt Date: 20230518
  Transmission Date: 20230722
  Serious: Yes (Other)
  Sender: FDA-Public Use
  Company Number: GB-ROCHE-2830541

PATIENT
  Age: 40 Year
  Sex: Female

DRUGS (2)
  1. OCREVUS [Suspect]
     Active Substance: OCRELIZUMAB
     Indication: Relapsing-remitting multiple sclerosis
     Dosage: DAY 15 DOSE
     Route: 041
     Dates: start: 20210428
  2. OCREVUS [Suspect]
     Active Substance: OCRELIZUMAB
     Dosage: 6 MONTH DOSE
     Route: 041

REACTIONS (4)
  - Urinary tract infection [Not Recovered/Not Resolved]
  - Hypotension [Recovered/Resolved]
  - Tachycardia [Not Recovered/Not Resolved]
  - Pruritus [Recovered/Resolved]

NARRATIVE: CASE EVENT DATE: 20210507
